FAERS Safety Report 6816513-9 (Version None)
Quarter: 2010Q3

REPORT INFORMATION
  Report Type: 
  Country: None (occurrence: None)
  Receive Date: 20100706
  Receipt Date: 20100330
  Transmission Date: 20110219
  Serious: Yes (Other)
  Sender: FDA-Public Use
  Company Number: US-ASTRAZENECA-2006UW08927

PATIENT
  Age: 399 Month
  Sex: Female

DRUGS (19)
  1. SEROQUEL [Suspect]
     Indication: HALLUCINATION, AUDITORY
     Route: 048
     Dates: start: 20001201
  2. SEROQUEL [Suspect]
     Indication: DEPRESSION
     Route: 048
     Dates: start: 20001201
  3. SEROQUEL [Suspect]
     Route: 048
     Dates: start: 20010106
  4. SEROQUEL [Suspect]
     Route: 048
     Dates: start: 20010106
  5. ZYPREXA [Suspect]
     Indication: HALLUCINATION, AUDITORY
     Dates: start: 19980101
  6. ZYPREXA [Suspect]
     Indication: DEPRESSION
     Dates: start: 19980101
  7. ZYPREXA [Suspect]
     Dates: start: 20010106
  8. ZYPREXA [Suspect]
     Dates: start: 20010106
  9. RISPERDAL [Suspect]
     Indication: HALLUCINATION, AUDITORY
     Dates: start: 20000501
  10. RISPERDAL [Suspect]
     Indication: DEPRESSION
     Dates: start: 20000501
  11. RISPERDAL [Suspect]
     Dates: start: 20000623
  12. RISPERDAL [Suspect]
     Dates: start: 20000623
  13. LUVOX [Concomitant]
     Dosage: STRENGTH- 150 MG-300 MG, DAILY
     Route: 048
     Dates: start: 20010106
  14. AMITRIPTYLINE [Concomitant]
     Dates: start: 20050624
  15. PAXIL [Concomitant]
     Dates: start: 20050624
  16. TRAZODONE HYDROCHLORIDE [Concomitant]
     Dates: start: 20050106
  17. ABILIFY [Concomitant]
     Dates: start: 20050106
  18. EFFEXOR XR [Concomitant]
     Dates: start: 20050106
  19. PRAZOSIN HCL [Concomitant]
     Dates: start: 20050106

REACTIONS (3)
  - DIABETES MELLITUS [None]
  - DIABETIC NEUROPATHY [None]
  - TYPE 2 DIABETES MELLITUS [None]
